FAERS Safety Report 20784341 (Version 6)
Quarter: 2023Q2

REPORT INFORMATION
  Report Type: Spontaneous
  Country: CA (occurrence: CA)
  Receive Date: 20220504
  Receipt Date: 20230524
  Transmission Date: 20230721
  Serious: Yes (Other)
  Sender: FDA-Public Use
  Company Number: CA-PFIZER INC-202200463187

PATIENT
  Age: 44 Year
  Sex: Male
  Weight: 87 kg

DRUGS (14)
  1. RUXIENCE [Suspect]
     Active Substance: RITUXIMAB-PVVR
     Indication: Rheumatoid arthritis
     Dosage: 1000 MG,DAY 1 AND DAY 15
     Route: 042
     Dates: start: 20220314, end: 20220426
  2. RUXIENCE [Suspect]
     Active Substance: RITUXIMAB-PVVR
     Dosage: 1000 MG,DAY 1 AND DAY 15
     Route: 042
     Dates: start: 20220426
  3. RUXIENCE [Suspect]
     Active Substance: RITUXIMAB-PVVR
     Dosage: 1000 MG, 1 SINGLE DOSE, NOT YET STARTED
     Route: 042
  4. RUXIENCE [Suspect]
     Active Substance: RITUXIMAB-PVVR
     Dosage: 1000 MG, 2 DOSES, 2 WEEKS APART - NOT YET STARTED
     Route: 042
  5. RUXIENCE [Suspect]
     Active Substance: RITUXIMAB-PVVR
     Dosage: 1000 MG X 2 DOSES (ON DAY1), 2 WEEKS APART
     Route: 042
     Dates: start: 20230504
  6. RUXIENCE [Suspect]
     Active Substance: RITUXIMAB-PVVR
     Dosage: 1000 MG X 2 DOSES (ON DAY1), 2 WEEKS APART (ON DAY 15)
     Route: 042
     Dates: start: 20230518
  7. ACETAMINOPHEN [Concomitant]
     Active Substance: ACETAMINOPHEN
     Indication: Premedication
     Dosage: 650 MG PO
     Route: 048
     Dates: start: 20220426, end: 20220426
  8. BENADRYL [Concomitant]
     Active Substance: DIPHENHYDRAMINE HYDROCHLORIDE
     Indication: Premedication
     Dosage: 25 MG (SUPPOSED TO BE TAKE 50MG)
     Dates: start: 20230504, end: 20230504
  9. DIPHENHYDRAMINE [Concomitant]
     Active Substance: DIPHENHYDRAMINE
     Indication: Premedication
     Dosage: 25 MG PO
     Route: 048
     Dates: start: 20220426, end: 20220426
  10. DIPHENHYDRAMINE [Concomitant]
     Active Substance: DIPHENHYDRAMINE
     Dosage: 25 MG
     Dates: start: 20230518, end: 20230518
  11. HYDROXYCHLOROQUINE [Concomitant]
     Active Substance: HYDROXYCHLOROQUINE
     Dosage: UNK
  12. HYDROXYCHLOROQUINE [Concomitant]
     Active Substance: HYDROXYCHLOROQUINE
     Dosage: 1 DF, DOSAGE NOT AVAILABLE
     Route: 065
  13. METHYLPREDNISOLONE [Concomitant]
     Active Substance: METHYLPREDNISOLONE
     Indication: Premedication
     Dosage: 100 MG
     Route: 042
     Dates: start: 20220426, end: 20220426
  14. METHOTREXATE [Concomitant]
     Active Substance: METHOTREXATE
     Dosage: 25 MG, WEEKLY
     Route: 058
     Dates: start: 2018, end: 2020

REACTIONS (14)
  - Heart rate decreased [Unknown]
  - Off label use [Unknown]
  - Inappropriate schedule of product administration [Unknown]
  - Off label use [Unknown]
  - Incorrect product administration duration [Unknown]
  - Lethargy [Recovering/Resolving]
  - COVID-19 [Unknown]
  - Feeling abnormal [Unknown]
  - Fatigue [Recovering/Resolving]
  - Infection [Unknown]
  - Influenza like illness [Unknown]
  - Nausea [Unknown]
  - Chills [Unknown]
  - Hypertension [Unknown]

NARRATIVE: CASE EVENT DATE: 20220301
